FAERS Safety Report 16693735 (Version 1)
Quarter: 2019Q3

REPORT INFORMATION
  Report Type: Spontaneous
  Country: US (occurrence: US)
  Receive Date: 20190812
  Receipt Date: 20190812
  Transmission Date: 20191004
  Serious: Yes (Hospitalization, Other)
  Sender: FDA-Public Use
  Company Number: US-MYLANLABS-2019M1074236

PATIENT
  Age: 50 Year
  Sex: Male

DRUGS (6)
  1. CIDOFOVIR. [Suspect]
     Active Substance: CIDOFOVIR
     Indication: RESPIRATORY PAPILLOMA
  2. INDOLE-3-CARBINOL [Concomitant]
     Active Substance: DIETARY SUPPLEMENT
     Indication: SINONASAL PAPILLOMA
  3. INDOLE-3-CARBINOL [Concomitant]
     Active Substance: DIETARY SUPPLEMENT
     Indication: RESPIRATORY PAPILLOMA
     Route: 065
  4. CIDOFOVIR. [Suspect]
     Active Substance: CIDOFOVIR
     Indication: SINONASAL PAPILLOMA
  5. CIDOFOVIR. [Suspect]
     Active Substance: CIDOFOVIR
     Indication: PAPILLOMA VIRAL INFECTION
     Route: 065
  6. INDOLE-3-CARBINOL [Concomitant]
     Active Substance: DIETARY SUPPLEMENT
     Indication: PAPILLOMA VIRAL INFECTION

REACTIONS (3)
  - Malignant transformation [Recovering/Resolving]
  - Laryngeal squamous cell carcinoma [Recovering/Resolving]
  - Tracheal cancer [Recovering/Resolving]
